FAERS Safety Report 9185912 (Version 9)
Quarter: 2014Q2

REPORT INFORMATION
  Report Type: Report from Study
  Country: NL (occurrence: NL)
  Receive Date: 20130325
  Receipt Date: 20140414
  Transmission Date: 20141212
  Serious: Yes (Death, Life-Threatening)
  Sender: FDA-Public Use
  Company Number: NL-B.I. PHARMACEUTICALS,INC./RIDGEFIELD-2013-RD-00262EU

PATIENT
  Age: 64 Year
  Sex: Male
  Weight: 77 kg

DRUGS (8)
  1. BI 1356 [Suspect]
     Indication: TYPE 2 DIABETES MELLITUS
     Dosage: 5 MG
     Route: 048
     Dates: start: 20120607, end: 20130328
  2. FENTANYL [Suspect]
     Indication: CANCER PAIN
     Dosage: 1000 MCG
     Route: 060
     Dates: start: 20130328
  3. DIOVAN [Concomitant]
     Indication: HYPERTENSION
     Dosage: 160 MG
     Route: 048
  4. AMLODIPINE [Concomitant]
     Indication: HYPERTENSION
     Dosage: 10 MG
     Route: 048
  5. INEGY [Concomitant]
     Indication: ISCHAEMIC HEART DISEASE PROPHYLAXIS
     Dosage: 30 MG
     Route: 048
  6. METOPROLOLTARTRAAT [Concomitant]
     Indication: HYPERTENSION
     Dosage: 100 MG
     Route: 048
  7. CARBASALAATCALCIUM [Concomitant]
     Indication: ISCHAEMIC HEART DISEASE PROPHYLAXIS
     Dosage: 100 MG
     Route: 048
  8. METFORMIN [Concomitant]
     Indication: TYPE 2 DIABETES MELLITUS
     Dosage: 2550 MG
     Route: 048

REACTIONS (2)
  - Non-small cell lung cancer stage IV [Fatal]
  - Drug eruption [Recovered/Resolved]
